FAERS Safety Report 12656529 (Version 6)
Quarter: 2017Q1

REPORT INFORMATION
  Report Type: Report from Study
  Country: CA (occurrence: CA)
  Receive Date: 20160816
  Receipt Date: 20170224
  Transmission Date: 20170428
  Serious: Yes (Other)
  Sender: FDA-Public Use
  Company Number: PHHY2016CA110384

PATIENT
  Age: 79 Year
  Sex: Female

DRUGS (3)
  1. SANDOSTATIN [Suspect]
     Active Substance: OCTREOTIDE ACETATE
     Indication: CARCINOID TUMOUR
     Dosage: UNK, ONCE/SINGLE
     Route: 058
     Dates: start: 20160609, end: 20160609
  2. SANDOSTATIN LAR DEPOT [Suspect]
     Active Substance: OCTREOTIDE ACETATE
     Indication: CARCINOID TUMOUR
     Dosage: 30 MG, QMO( ONCE EVERY MONTH)
     Route: 030
     Dates: start: 20160815
  3. RAMIPRIL. [Concomitant]
     Active Substance: RAMIPRIL
     Indication: PRODUCT USED FOR UNKNOWN INDICATION
     Dosage: 5 MG, QD
     Route: 065
     Dates: start: 2016

REACTIONS (9)
  - Malaise [Unknown]
  - Abdominal discomfort [Unknown]
  - Blood pressure systolic increased [Unknown]
  - Contrast media reaction [Unknown]
  - Cholelithiasis [Unknown]
  - Frequent bowel movements [Unknown]
  - Diarrhoea [Recovering/Resolving]
  - Anorectal discomfort [Unknown]
  - Pain [Recovering/Resolving]

NARRATIVE: CASE EVENT DATE: 20160815
